FAERS Safety Report 24410576 (Version 1)
Quarter: 2024Q4

REPORT INFORMATION
  Report Type: Spontaneous
  Country: ID (occurrence: ID)
  Receive Date: 20241008
  Receipt Date: 20241008
  Transmission Date: 20250115
  Serious: Yes (Life-Threatening, Hospitalization)
  Sender: MYLAN
  Company Number: ID-MYLANLABS-2024M1091183

PATIENT
  Age: 51 Year
  Sex: Male

DRUGS (27)
  1. ATORVASTATIN [Suspect]
     Active Substance: ATORVASTATIN
     Indication: Acute myocardial infarction
     Dosage: UNK
     Route: 048
  2. ATORVASTATIN [Suspect]
     Active Substance: ATORVASTATIN
     Indication: Cerebral infarction
  3. ATORVASTATIN [Suspect]
     Active Substance: ATORVASTATIN
     Indication: Ischaemic stroke
  4. ALTEPLASE [Suspect]
     Active Substance: ALTEPLASE
     Indication: Acute myocardial infarction
     Dosage: UNK
     Route: 042
  5. ALTEPLASE [Suspect]
     Active Substance: ALTEPLASE
     Indication: Cerebral infarction
  6. ALTEPLASE [Suspect]
     Active Substance: ALTEPLASE
     Indication: Ischaemic stroke
  7. MANNITOL [Suspect]
     Active Substance: MANNITOL
     Indication: Acute myocardial infarction
     Dosage: UNK
     Route: 042
  8. MANNITOL [Suspect]
     Active Substance: MANNITOL
     Indication: Cerebral infarction
  9. MANNITOL [Suspect]
     Active Substance: MANNITOL
     Indication: Ischaemic stroke
  10. ASPIRIN [Suspect]
     Active Substance: ASPIRIN
     Indication: Acute myocardial infarction
     Dosage: UNK
     Route: 048
  11. ASPIRIN [Suspect]
     Active Substance: ASPIRIN
     Indication: Cerebral infarction
  12. ASPIRIN [Suspect]
     Active Substance: ASPIRIN
     Indication: Ischaemic stroke
  13. CLOPIDOGREL [Suspect]
     Active Substance: CLOPIDOGREL BISULFATE
     Indication: Acute myocardial infarction
     Dosage: UNK
     Route: 048
  14. CLOPIDOGREL [Suspect]
     Active Substance: CLOPIDOGREL BISULFATE
     Indication: Cerebral infarction
  15. CLOPIDOGREL [Suspect]
     Active Substance: CLOPIDOGREL BISULFATE
     Indication: Ischaemic stroke
  16. FUROSEMIDE [Suspect]
     Active Substance: FUROSEMIDE
     Indication: Acute myocardial infarction
     Dosage: UNK
     Route: 065
  17. FUROSEMIDE [Suspect]
     Active Substance: FUROSEMIDE
     Indication: Cerebral infarction
  18. FUROSEMIDE [Suspect]
     Active Substance: FUROSEMIDE
     Indication: Ischaemic stroke
  19. MORPHINE [Suspect]
     Active Substance: MORPHINE
     Indication: Acute myocardial infarction
     Dosage: UNK
     Route: 065
  20. MORPHINE [Suspect]
     Active Substance: MORPHINE
     Indication: Cerebral infarction
  21. MORPHINE [Suspect]
     Active Substance: MORPHINE
     Indication: Ischaemic stroke
  22. FONDAPARINUX SODIUM [Suspect]
     Active Substance: FONDAPARINUX SODIUM
     Indication: Acute myocardial infarction
     Dosage: UNK
     Route: 058
  23. FONDAPARINUX SODIUM [Suspect]
     Active Substance: FONDAPARINUX SODIUM
     Indication: Cerebral infarction
  24. FONDAPARINUX SODIUM [Suspect]
     Active Substance: FONDAPARINUX SODIUM
     Indication: Ischaemic stroke
  25. CARVEDILOL [Suspect]
     Active Substance: CARVEDILOL
     Indication: Acute myocardial infarction
     Dosage: UNK
     Route: 048
  26. CARVEDILOL [Suspect]
     Active Substance: CARVEDILOL
     Indication: Cerebral infarction
  27. CARVEDILOL [Suspect]
     Active Substance: CARVEDILOL
     Indication: Ischaemic stroke

REACTIONS (1)
  - Drug ineffective [Unknown]
